FAERS Safety Report 20763260 (Version 1)
Quarter: 2022Q2

REPORT INFORMATION
  Report Type: Report from Study
  Country: US (occurrence: US)
  Receive Date: 20220428
  Receipt Date: 20220428
  Transmission Date: 20220721
  Serious: No
  Sender: FDA-Public Use
  Company Number: US-BIOVITRUM-2022US05566

PATIENT
  Age: 16 Year
  Sex: Female

DRUGS (1)
  1. KINERET [Suspect]
     Active Substance: ANAKINRA
     Indication: Still^s disease
     Route: 058
     Dates: start: 20220409

REACTIONS (4)
  - Pyrexia [Unknown]
  - Injection site pruritus [Unknown]
  - Injection site erythema [Unknown]
  - Off label use [Unknown]

NARRATIVE: CASE EVENT DATE: 20220409
